FAERS Safety Report 8476629-0 (Version None)
Quarter: 2012Q2

REPORT INFORMATION
  Report Type: 
  Country: None (occurrence: None)
  Receive Date: 20120628
  Receipt Date: 20120618
  Transmission Date: 20120825
  Serious: Yes (Hospitalization)
  Sender: FDA-Public Use
  Company Number: ES-TEVA-344673ISR

PATIENT
  Sex: Female

DRUGS (1)
  1. COPAXONE [Suspect]
     Indication: MULTIPLE SCLEROSIS
     Route: 058
     Dates: start: 20090729

REACTIONS (4)
  - MULTIPLE SCLEROSIS RELAPSE [None]
  - PLANTAR FASCIITIS [None]
  - OPTIC NEURITIS [None]
  - MOTOR DYSFUNCTION [None]
